FAERS Safety Report 13022466 (Version 5)
Quarter: 2018Q2

REPORT INFORMATION
  Report Type: Report from Study
  Country: JP (occurrence: JP)
  Receive Date: 20161213
  Receipt Date: 20180529
  Transmission Date: 20180711
  Serious: Yes (Hospitalization, Other)
  Sender: FDA-Public Use
  Company Number: JP-BRISTOL-MYERS SQUIBB COMPANY-BMS-2016-087001

PATIENT
  Age: 77 Year
  Sex: Female
  Weight: 46 kg

DRUGS (9)
  1. IPILIMUMAB [Suspect]
     Active Substance: IPILIMUMAB
     Indication: PRODUCT USED FOR UNKNOWN INDICATION
     Dosage: 3 MG/KG, QD
     Route: 041
     Dates: start: 20161109, end: 20161109
  2. AMLODIPINE                         /00972402/ [Concomitant]
     Active Substance: AMLODIPINE BESYLATE
     Indication: HYPERTENSION
     Dosage: 5 MG, UNK
     Route: 048
     Dates: start: 20160902, end: 20161130
  3. IPILIMUMAB [Suspect]
     Active Substance: IPILIMUMAB
     Indication: MALIGNANT MELANOMA
     Dosage: 3 MG/KG, QD
     Route: 041
     Dates: start: 20160902, end: 20160902
  4. BETANIS [Concomitant]
     Active Substance: MIRABEGRON
     Indication: BLADDER IRRITATION
     Dosage: 50 MG, UNK
     Route: 048
     Dates: start: 20160902, end: 20161130
  5. LANSOPRAZOLE. [Concomitant]
     Active Substance: LANSOPRAZOLE
     Indication: CHRONIC GASTRITIS
     Dosage: 1 DF, UNK
     Route: 048
     Dates: start: 20160902, end: 20161130
  6. IPILIMUMAB [Suspect]
     Active Substance: IPILIMUMAB
     Indication: PRODUCT USED FOR UNKNOWN INDICATION
     Dosage: 3 MG/KG, QD
     Route: 041
     Dates: start: 20160928, end: 20160928
  7. MOSAPRIDE CITRATE [Concomitant]
     Active Substance: MOSAPRIDE CITRATE
     Indication: CHRONIC GASTRITIS
     Dosage: UNK
     Route: 048
     Dates: start: 20160902, end: 20161130
  8. MAGNESIUM OXIDE. [Concomitant]
     Active Substance: MAGNESIUM OXIDE
     Indication: CONSTIPATION
     Dosage: 3 DF, UNK
     Route: 048
     Dates: start: 20160902, end: 20161130
  9. IPILIMUMAB [Suspect]
     Active Substance: IPILIMUMAB
     Indication: PRODUCT USED FOR UNKNOWN INDICATION
     Dosage: 3 MG/KG, QD
     Route: 041
     Dates: start: 20161130, end: 20161130

REACTIONS (7)
  - Cholecystitis acute [Recovered/Resolved]
  - Colitis [Not Recovered/Not Resolved]
  - Klebsiella test positive [Unknown]
  - Enterococcus test positive [Unknown]
  - Thyroid hormones decreased [Recovered/Resolved]
  - Urosepsis [Recovered/Resolved]
  - Escherichia infection [Unknown]

NARRATIVE: CASE EVENT DATE: 20161010
